FAERS Safety Report 6468464-X (Version None)
Quarter: 2009Q4

REPORT INFORMATION
  Report Type: 
  Country: None (occurrence: None)
  Receive Date: 20091202
  Receipt Date: 20091202
  Transmission Date: 20100525
  Serious: No
  Sender: FDA-Public Use
  Company Number: None

PATIENT
  Age: 26 Year
  Sex: Female

DRUGS (1)
  1. TUBERSOL [Suspect]
     Dosage: INTRADERMAL, FOREARM RI
     Route: 023

REACTIONS (3)
  - DRUG EXPOSURE DURING PREGNANCY [None]
  - RASH ERYTHEMATOUS [None]
  - SENSATION OF HEAVINESS [None]
